FAERS Safety Report 6816615-7 (Version None)
Quarter: 2010Q3

REPORT INFORMATION
  Report Type: 
  Country: None (occurrence: None)
  Receive Date: 20100706
  Receipt Date: 20100622
  Transmission Date: 20110219
  Serious: Yes (Hospitalization, Other)
  Sender: FDA-Public Use
  Company Number: JP-JNJFOC-20080903994

PATIENT
  Sex: Male
  Weight: 65 kg

DRUGS (15)
  1. PREZISTA [Suspect]
     Indication: HIV INFECTION
     Route: 048
  2. ZERIT [Suspect]
     Indication: HIV INFECTION
     Route: 048
  3. ZERIT [Suspect]
     Route: 048
  4. NORVIR [Suspect]
     Indication: HIV INFECTION
     Route: 048
  5. STOCRIN [Suspect]
     Indication: HIV INFECTION
     Route: 048
  6. STOCRIN [Suspect]
     Route: 048
  7. KALETRA [Suspect]
     Indication: HIV INFECTION
     Route: 048
  8. KALETRA [Suspect]
     Route: 048
  9. ISENTRESS [Suspect]
     Indication: HIV INFECTION
     Route: 048
  10. RETROVIR [Concomitant]
     Indication: HIV INFECTION
     Route: 048
  11. RETROVIR [Concomitant]
     Route: 048
  12. EPIVIR [Concomitant]
     Indication: HIV INFECTION
     Route: 048
  13. ACTOS [Concomitant]
     Indication: DIABETES MELLITUS
     Route: 048
  14. ADVATE [Concomitant]
     Indication: HAEMOPHILIA
     Route: 042
  15. CROSS EIGHT M [Concomitant]
     Indication: HAEMOPHILIA
     Route: 042

REACTIONS (3)
  - ARTHRITIS [None]
  - BLOOD GLUCOSE INCREASED [None]
  - HYPERLIPIDAEMIA [None]
